FAERS Safety Report 4461200-8 (Version None)
Quarter: 2004Q3

REPORT INFORMATION
  Report Type: 
  Country: None (occurrence: None)
  Receive Date: 20040923
  Receipt Date: 20040907
  Transmission Date: 20050211
  Serious: Yes (Death, Other)
  Sender: FDA-Public Use
  Company Number: 2004067531

PATIENT
  Sex: Male

DRUGS (3)
  1. NEURONTIN [Suspect]
     Indication: BACK INJURY
     Dosage: ORAL
     Route: 048
     Dates: start: 19980101
  2. ALL OTHER THERAPEUTIC PRODUCTS (ALL OTHER THERAPEUTIC PRODUCTS) [Suspect]
     Indication: BACK INJURY
  3. OXYCODONE HCL [Suspect]
     Indication: BACK PAIN

REACTIONS (5)
  - ANXIETY [None]
  - COMPLETED SUICIDE [None]
  - DRUG ABUSER [None]
  - DRUG INTERACTION [None]
  - PAIN [None]
